FAERS Safety Report 5125563-2 (Version None)
Quarter: 2006Q4

REPORT INFORMATION
  Report Type: 
  Country: None (occurrence: None)
  Receive Date: 20061005
  Receipt Date: 20060928
  Transmission Date: 20070319
  Serious: Yes (Hospitalization)
  Sender: FDA-Public Use
  Company Number: HQWYE392529SEP06

PATIENT
  Age: 23 Year
  Sex: Female

DRUGS (3)
  1. TRIPHASIL-28 [Suspect]
     Dates: start: 20040301
  2. ORTHO EVRA [Suspect]
     Dosage: PATCH, TRANSDERMAL
     Route: 062
     Dates: start: 20030101, end: 20040401
  3. TOPAMAX [Concomitant]

REACTIONS (7)
  - CHOLELITHIASIS [None]
  - DEEP VEIN THROMBOSIS [None]
  - INFLAMMATION [None]
  - PELVIC VENOUS THROMBOSIS [None]
  - PLEURAL EFFUSION [None]
  - RENAL ABSCESS [None]
  - SYSTEMIC LUPUS ERYTHEMATOSUS [None]
